FAERS Safety Report 7936950-9 (Version None)
Quarter: 2011Q4

REPORT INFORMATION
  Report Type: 
  Country: None (occurrence: None)
  Receive Date: 20111123
  Receipt Date: 20111121
  Transmission Date: 20120403
  Serious: Yes (Other)
  Sender: FDA-Public Use
  Company Number: US-PFIZER INC-2011285161

PATIENT
  Sex: Female
  Weight: 87.075 kg

DRUGS (9)
  1. MOBIC [Suspect]
     Indication: PAIN IN EXTREMITY
  2. PLAVIX [Concomitant]
     Indication: CARDIAC DISORDER
     Dosage: UNK
  3. NEURONTIN [Suspect]
     Indication: PAIN IN EXTREMITY
  4. NEURONTIN [Suspect]
     Indication: ARTHRALGIA
     Dosage: 300 MG DAILY
     Route: 048
     Dates: start: 20111101, end: 20111101
  5. MOBIC [Suspect]
     Indication: ARTHRALGIA
     Dosage: UNK
     Dates: start: 20111101, end: 20111117
  6. NEURONTIN [Suspect]
     Indication: BACK PAIN
     Dosage: 300 MG, 3X/DAY
     Route: 048
     Dates: start: 20111101, end: 20111117
  7. VASOTEC [Concomitant]
     Indication: BLOOD PRESSURE ABNORMAL
     Dosage: UNK
  8. MOBIC [Suspect]
     Indication: BACK PAIN
  9. NORVASC [Concomitant]
     Indication: BLOOD PRESSURE ABNORMAL
     Dosage: UNK

REACTIONS (11)
  - GAIT DISTURBANCE [None]
  - DIPLOPIA [None]
  - NAUSEA [None]
  - SOMNOLENCE [None]
  - DRUG INEFFECTIVE [None]
  - MALAISE [None]
  - DIZZINESS [None]
  - FATIGUE [None]
  - WEIGHT INCREASED [None]
  - JOINT SWELLING [None]
  - SPEECH DISORDER [None]
